FAERS Safety Report 8513174-8 (Version None)
Quarter: 2012Q3

REPORT INFORMATION
  Report Type: 
  Country: None (occurrence: None)
  Receive Date: 20120716
  Receipt Date: 20120710
  Transmission Date: 20120928
  Serious: Yes (Death)
  Sender: FDA-Public Use
  Company Number: BR-ROCHE-1086692

PATIENT
  Sex: Female
  Weight: 35 kg

DRUGS (1)
  1. MABTHERA [Suspect]
     Indication: RHEUMATOID ARTHRITIS
     Dates: start: 20120213, end: 20120227

REACTIONS (3)
  - SEPTIC SHOCK [None]
  - BRONCHOPNEUMONIA [None]
  - MENTAL IMPAIRMENT [None]
